FAERS Safety Report 24526084 (Version 1)
Quarter: 2024Q4

REPORT INFORMATION
  Report Type: Spontaneous
  Country: US (occurrence: US)
  Receive Date: 20241021
  Receipt Date: 20241021
  Transmission Date: 20250115
  Serious: No
  Sender: APOTEX
  Company Number: US-APOTEX-2024AP012141

PATIENT
  Age: 68 Year
  Sex: Male

DRUGS (18)
  1. ATORVASTATIN [Interacting]
     Active Substance: ATORVASTATIN
     Indication: Hyperlipidaemia
     Dosage: 1 DOSAGE FORM, Q.H.S.
     Route: 065
  2. ATORVASTATIN [Interacting]
     Active Substance: ATORVASTATIN
     Dosage: 40 MILLIGRAM, Q.H.S.
     Route: 065
  3. OXYCODONE [Interacting]
     Active Substance: OXYCODONE
     Indication: Pain
     Dosage: 10 MILLIGRAM, TID
     Route: 065
  4. FLUOXETINE [Interacting]
     Active Substance: FLUOXETINE HYDROCHLORIDE
     Indication: Generalised anxiety disorder
     Dosage: 1 DOSAGE FORM, QD
     Route: 065
  5. FLUOXETINE [Interacting]
     Active Substance: FLUOXETINE HYDROCHLORIDE
     Indication: Major depression
  6. DULOXETINE [Interacting]
     Active Substance: DULOXETINE
     Indication: Generalised anxiety disorder
     Dosage: 1 DOSAGE FORM, Q.AM
     Route: 065
  7. DULOXETINE [Interacting]
     Active Substance: DULOXETINE
     Indication: Major depression
  8. AMLODIPINE [Interacting]
     Active Substance: AMLODIPINE BESYLATE
     Indication: Hypertension
     Dosage: 1 DOSAGE FORM, QD
     Route: 065
  9. MELATONIN [Interacting]
     Active Substance: MELATONIN
     Indication: Insomnia
     Dosage: 1 DOSAGE FORM, Q.H.S.
     Route: 065
  10. FLUTICASONE [Concomitant]
     Active Substance: FLUTICASONE
     Indication: Hypersensitivity
     Dosage: 1 DOSAGE FORM, BID (AS NEEDED)
     Route: 065
  11. BUDESONIDE\FORMOTEROL [Concomitant]
     Active Substance: BUDESONIDE\FORMOTEROL
     Indication: Chronic obstructive pulmonary disease
     Dosage: 1 DOSAGE FORM, BID
  12. ASPIRIN [Concomitant]
     Active Substance: ASPIRIN
     Indication: Prophylaxis
     Dosage: 1 DOSAGE FORM, QD
     Route: 065
  13. ASPIRIN [Concomitant]
     Active Substance: ASPIRIN
     Indication: Cardiovascular disorder
  14. HYDROCHLOROTHIAZIDE [Concomitant]
     Active Substance: HYDROCHLOROTHIAZIDE
     Indication: Hypertension
     Dosage: 1 DOSAGE FORM, QD
     Route: 065
  15. LEVOTHYROXINE [Concomitant]
     Active Substance: LEVOTHYROXINE
     Indication: Hypothyroidism
     Dosage: 1 DOSAGE FORM, QD
     Route: 065
  16. NALOXONE [Concomitant]
     Active Substance: NALOXONE
     Indication: Overdose
     Dosage: 1 DOSAGE FORM (EVERY 2 MINUTES AS NEEDED)
     Route: 045
  17. CALCIUM CARBONATE\CHOLECALCIFEROL [Concomitant]
     Active Substance: CALCIUM CARBONATE\CHOLECALCIFEROL
     Indication: Supplementation therapy
     Dosage: 1 DOSAGE FORM, BID
     Route: 065
  18. CHOLECALCIFEROL [Interacting]
     Active Substance: CHOLECALCIFEROL
     Indication: Supplementation therapy
     Dosage: 1 DOSAGE FORM, QD
     Route: 065

REACTIONS (3)
  - Muscle disorder [Recovering/Resolving]
  - Drug-genetic interaction [Recovering/Resolving]
  - Enzyme inhibition [Recovering/Resolving]
